FAERS Safety Report 24307529 (Version 1)
Quarter: 2024Q3

REPORT INFORMATION
  Report Type: Spontaneous
  Country: US (occurrence: US)
  Receive Date: 20240911
  Receipt Date: 20240911
  Transmission Date: 20241016
  Serious: No
  Sender: GILEAD
  Company Number: US-GILEAD-2024-0687267

PATIENT
  Age: 54 Year
  Sex: Female

DRUGS (2)
  1. LENACAPAVIR [Suspect]
     Active Substance: LENACAPAVIR
     Indication: Product used for unknown indication
     Dosage: UNK
     Route: 065
     Dates: start: 202303
  2. TROGARZO [Concomitant]
     Active Substance: IBALIZUMAB-UIYK
     Dosage: UNK
     Dates: start: 202303

REACTIONS (1)
  - Viraemia [Not Recovered/Not Resolved]

NARRATIVE: CASE EVENT DATE: 20240410
